FAERS Safety Report 5290607-4 (Version None)
Quarter: 2007Q2

REPORT INFORMATION
  Report Type: 
  Country: None (occurrence: None)
  Receive Date: 20070405
  Receipt Date: 20070405
  Transmission Date: 20071010
  Serious: Yes (Hospitalization)
  Sender: FDA-Public Use
  Company Number: None

PATIENT
  Age: 20 Year
  Sex: Male
  Weight: 81.6 kg

DRUGS (2)
  1. APAP TAB [Suspect]
     Indication: PAIN
     Dosage: 1000MG PO Q 15MIN X 10H
     Route: 048
     Dates: start: 20061129
  2. IBUPROFEN [Concomitant]

REACTIONS (4)
  - DRUG TOXICITY [None]
  - INCORRECT DOSE ADMINISTERED [None]
  - NAUSEA [None]
  - VOMITING [None]
